FAERS Safety Report 25370083 (Version 5)
Quarter: 2025Q4

REPORT INFORMATION
  Report Type: Report from Study
  Country: US (occurrence: US)
  Receive Date: 20250528
  Receipt Date: 20251028
  Transmission Date: 20260117
  Serious: Yes (Other)
  Sender: MALLINCKRODT
  Company Number: US-MALLINCKRODT-MNK202500764

PATIENT
  Age: 76 Year
  Sex: Female

DRUGS (4)
  1. CORTICOTROPIN [Suspect]
     Active Substance: CORTICOTROPIN
     Indication: Ocular pemphigoid
     Dosage: 80 UNITS
  2. CORTICOTROPIN [Suspect]
     Active Substance: CORTICOTROPIN
     Indication: Ocular pemphigoid
     Route: 058
  3. CORTICOTROPIN [Suspect]
     Active Substance: CORTICOTROPIN
     Dosage: 40 UNITS
  4. CORTICOTROPIN [Suspect]
     Active Substance: CORTICOTROPIN

REACTIONS (8)
  - Corneal disorder [Not Recovered/Not Resolved]
  - Transplant failure [Unknown]
  - Venous injury [Unknown]
  - Blood pressure systolic increased [Unknown]
  - Hypertension [Recovering/Resolving]
  - Injection site pain [Unknown]
  - Injection site discolouration [Unknown]
  - Therapeutic product effect variable [Unknown]

NARRATIVE: CASE EVENT DATE: 20240501
